FAERS Safety Report 5196160-8 (Version None)
Quarter: 2007Q1

REPORT INFORMATION
  Report Type: 
  Country: None (occurrence: None)
  Receive Date: 20070102
  Receipt Date: 20061219
  Transmission Date: 20070707
  Serious: Yes (Death)
  Sender: FDA-Public Use
  Company Number: GB-ELI_LILLY_AND_COMPANY-GB200611004844

PATIENT
  Sex: Female

DRUGS (2)
  1. PROZAC [Suspect]
  2. CLOZARIL [Concomitant]

REACTIONS (1)
  - CEREBRAL HAEMORRHAGE [None]
